FAERS Safety Report 5635244-4 (Version None)
Quarter: 2008Q1

REPORT INFORMATION
  Report Type: 
  Country: None (occurrence: None)
  Receive Date: 20080222
  Receipt Date: 20080214
  Transmission Date: 20080703
  Serious: Yes (Disabling, Other)
  Sender: FDA-Public Use
  Company Number: GB-BOEHRINGER INGELHEIM GMBH, GERMANY-2008-UK-00641UK

PATIENT
  Age: 66 Year
  Sex: Female
  Weight: 67 kg

DRUGS (7)
  1. SPIRIVA [Suspect]
     Indication: CHRONIC OBSTRUCTIVE PULMONARY DISEASE
     Route: 048
     Dates: start: 20060713, end: 20071003
  2. ADCAL D3 [Concomitant]
     Route: 055
     Dates: start: 20020929
  3. ALENDRONIC ACID [Concomitant]
     Route: 055
     Dates: start: 20020510
  4. LANSOPRAZOLE [Concomitant]
     Route: 048
     Dates: start: 20011214
  5. PREDNISOLONE [Concomitant]
     Dates: end: 20071206
  6. QVAR 40 [Concomitant]
     Route: 055
     Dates: start: 20060524
  7. ALBUTEROL [Concomitant]
     Route: 055
     Dates: start: 20011213

REACTIONS (2)
  - CONDITION AGGRAVATED [None]
  - DYSPNOEA [None]
